FAERS Safety Report 4481646-1 (Version None)
Quarter: 2004Q4

REPORT INFORMATION
  Report Type: 
  Country: None (occurrence: None)
  Receive Date: 20041021
  Receipt Date: 20041011
  Transmission Date: 20050328
  Serious: Yes (Hospitalization)
  Sender: FDA-Public Use
  Company Number: AU-MERCK-0410AUS00126

PATIENT
  Age: 61 Year
  Sex: Male

DRUGS (6)
  1. VIOXX [Suspect]
     Indication: SURGERY
     Route: 048
     Dates: start: 20000101, end: 20041001
  2. IRBESARTAN [Concomitant]
     Route: 065
  3. ATORVASTATIN CALCIUM [Concomitant]
     Route: 065
  4. ASPIRIN CALCIUM [Concomitant]
     Route: 048
  5. ASPIRIN CALCIUM [Concomitant]
     Route: 048
  6. FLUVOXAMINE MALEATE [Concomitant]
     Route: 065

REACTIONS (1)
  - MYOCARDIAL INFARCTION [None]
